FAERS Safety Report 12967968 (Version 1)
Quarter: 2016Q4

REPORT INFORMATION
  Report Type: Other
  Country: US (occurrence: US)
  Receive Date: 20161123
  Receipt Date: 20161123
  Transmission Date: 20170207
  Serious: Yes (Other)
  Sender: FDA-Public Use
  Company Number: US-LUPIN PHARMACEUTICALS INC.-2016-05137

PATIENT
  Sex: Female

DRUGS (2)
  1. DONEPEZIL. [Suspect]
     Active Substance: DONEPEZIL
     Indication: APHASIA
     Route: 065
  2. DONEPEZIL. [Suspect]
     Active Substance: DONEPEZIL
     Route: 065

REACTIONS (4)
  - Cognitive disorder [Recovered/Resolved]
  - Drug withdrawal syndrome [Unknown]
  - Language disorder [Recovered/Resolved]
  - Diarrhoea [Recovered/Resolved]
